FAERS Safety Report 11641028 (Version 2)
Quarter: 2015Q4

REPORT INFORMATION
  Report Type: Spontaneous
  Country: JP (occurrence: JP)
  Receive Date: 20151019
  Receipt Date: 20151201
  Transmission Date: 20160304
  Serious: No
  Sender: FDA-Public Use
  Company Number: JP-ASTELLAS-2015JP020720

PATIENT
  Age: 71 Year
  Sex: Male

DRUGS (6)
  1. LUPRAC [Concomitant]
     Active Substance: TORSEMIDE
     Indication: HYPERTENSION
     Route: 048
     Dates: start: 20130201
  2. XTANDI [Suspect]
     Active Substance: ENZALUTAMIDE
     Indication: HORMONE-REFRACTORY PROSTATE CANCER
     Route: 048
     Dates: start: 20141016
  3. XTANDI [Suspect]
     Active Substance: ENZALUTAMIDE
     Dosage: UNK UNK, UNKNOWN FREQ.
     Route: 048
     Dates: end: 20141113
  4. LORCAM [Concomitant]
     Active Substance: LORNOXICAM
     Indication: BACK PAIN
     Route: 048
     Dates: start: 20130201
  5. LEUPLIN [Concomitant]
     Active Substance: LEUPROLIDE ACETATE
     Indication: HORMONE-REFRACTORY PROSTATE CANCER
     Route: 058
     Dates: start: 20130201
  6. MEVALOTIN [Concomitant]
     Active Substance: PRAVASTATIN SODIUM
     Indication: HYPERLIPIDAEMIA
     Route: 048
     Dates: start: 20130201

REACTIONS (1)
  - Hepatic function abnormal [Recovered/Resolved]

NARRATIVE: CASE EVENT DATE: 20141030
